FAERS Safety Report 9537028 (Version 1)
Quarter: 2013Q3

REPORT INFORMATION
  Report Type: Spontaneous
  Country: US (occurrence: None)
  Receive Date: 20130918
  Receipt Date: 20130918
  Transmission Date: 20140515
  Serious: Yes (Life-Threatening)
  Sender: FDA-Public Use
  Company Number: None

PATIENT
  Age: 69 Year
  Sex: Female
  Weight: 59 kg

DRUGS (10)
  1. DOPAMINE [Suspect]
     Indication: HYPOTENSION
     Dosage: 2 MCG/KG/MIN INTRAVENOUS
     Route: 042
     Dates: start: 20110603, end: 20110605
  2. AMLODIPINE [Concomitant]
  3. SIMVASTATIN [Concomitant]
  4. ACETYLCYSTEINE [Concomitant]
  5. ASPIRIN [Concomitant]
  6. CLOPIDOGREL [Concomitant]
  7. MORPHINE [Concomitant]
  8. PHENYLEPHRINE [Concomitant]
  9. HYDROMORPHINE [Concomitant]
  10. ONDANSETRON [Concomitant]

REACTIONS (2)
  - Aphasia [None]
  - Hemiparesis [None]
